FAERS Safety Report 17052943 (Version 3)
Quarter: 2019Q4

REPORT INFORMATION
  Report Type: Spontaneous
  Country: US (occurrence: US)
  Receive Date: 20191120
  Receipt Date: 20191219
  Transmission Date: 20200122
  Serious: Yes (Hospitalization, Other)
  Sender: FDA-Public Use
  Company Number: US-HORIZON-KRY-1045-2019

PATIENT
  Age: 54 Year
  Sex: Male
  Weight: 173 kg

DRUGS (11)
  1. BUMETADINE [Concomitant]
     Active Substance: BUMETANIDE
     Dosage: 2MG QD
     Route: 048
  2. FOLIC ACID. [Concomitant]
     Active Substance: FOLIC ACID
     Dosage: 1MG QD
     Route: 048
  3. TORADOL [Concomitant]
     Active Substance: KETOROLAC TROMETHAMINE
     Indication: PREMEDICATION
     Dosage: 30MG PRIOR TO
  4. ALLEGRA [Concomitant]
     Active Substance: FEXOFENADINE HYDROCHLORIDE
     Indication: PREMEDICATION
     Dosage: 60MG NIGHT BEFORE AND MORNING OF
  5. TYLENOL [Concomitant]
     Active Substance: ACETAMINOPHEN
     Indication: PREMEDICATION
     Dosage: 1000MG MORNING OF
  6. KRYSTEXXA [Suspect]
     Active Substance: PEGLOTICASE
     Indication: GOUT
     Route: 042
     Dates: start: 20190319
  7. SOLU-CORTEF [Concomitant]
     Active Substance: HYDROCORTISONE SODIUM SUCCINATE
     Indication: PREMEDICATION
     Dosage: 200MG PRIOR TO
  8. COLCHICINE. [Concomitant]
     Active Substance: COLCHICINE
     Dosage: 0.6MG BID
     Route: 048
  9. METHOTREXATE. [Concomitant]
     Active Substance: METHOTREXATE
     Dosage: 25MG ONCE A WEEK
     Route: 058
  10. ZANTAC [Concomitant]
     Active Substance: RANITIDINE HYDROCHLORIDE
     Indication: PREMEDICATION
     Dosage: 150MG PRIOR TO
  11. INDOMETHACIN. [Concomitant]
     Active Substance: INDOMETHACIN
     Dosage: 75MG BID
     Route: 048

REACTIONS (10)
  - Therapeutic response decreased [Unknown]
  - Arthralgia [Unknown]
  - Fracture displacement [Unknown]
  - Infusion related reaction [Recovered/Resolved]
  - Fall [Recovered/Resolved]
  - Musculoskeletal pain [Unknown]
  - Ankle fracture [Not Recovered/Not Resolved]
  - Gait disturbance [Unknown]
  - Pain [Unknown]
  - Back pain [Unknown]

NARRATIVE: CASE EVENT DATE: 20190705
